FAERS Safety Report 9397913 (Version 2)
Quarter: 2013Q4

REPORT INFORMATION
  Report Type: Spontaneous
  Country: JP (occurrence: None)
  Receive Date: 20130709
  Receipt Date: 20131016
  Transmission Date: 20140711
  Serious: Yes (Death)
  Sender: FDA-Public Use
  Company Number: SYM-2013-05365

PATIENT
  Sex: 0

DRUGS (3)
  1. FLUOROURACIL (FLUOROURACIL) (FLUOROURACIL) [Suspect]
     Indication: NEOPLASM MALIGNANT
  2. CISPLATIN [Suspect]
     Indication: NEOPLASM MALIGNANT
  3. TAXOTERE [Suspect]
     Indication: NEOPLASM MALIGNANT

REACTIONS (2)
  - Febrile neutropenia [None]
  - Septic shock [None]
